FAERS Safety Report 16946357 (Version 1)
Quarter: 2019Q4

REPORT INFORMATION
  Report Type: Spontaneous
  Country: US (occurrence: US)
  Receive Date: 20190830
  Receipt Date: 20190830
  Transmission Date: 20200122
  Serious: No
  Sender: FDA-Public Use
  Company Number: None

PATIENT
  Age: 44 Year
  Sex: Female
  Weight: 77.11 kg

DRUGS (1)
  1. ALBUTEROL (GENERIC) 108MCG/ACT WATER [Suspect]
     Active Substance: ALBUTEROL
     Indication: ASTHMA
     Dosage: ?          OTHER DOSE:2 PUFFS;?
     Route: 055
     Dates: start: 20190819, end: 20190826

REACTIONS (3)
  - Chest discomfort [None]
  - Drug ineffective [None]
  - Condition aggravated [None]
